FAERS Safety Report 8953957 (Version 1)
Quarter: 2012Q4

REPORT INFORMATION
  Report Type: 
  Country: GB (occurrence: GB)
  Receive Date: 20121206
  Receipt Date: 20121206
  Transmission Date: 20130627
  Serious: Yes (Other)
  Sender: FDA-Public Use
  Company Number: GB-009507513-1212GBR001359

PATIENT

DRUGS (1)
  1. SINEMET-PLUS [Suspect]
     Dosage: UNK
     Route: 048
     Dates: start: 2005

REACTIONS (2)
  - Cerebrovascular accident [Unknown]
  - Dysphagia [Unknown]
